FAERS Safety Report 10674065 (Version 1)
Quarter: 2014Q4

REPORT INFORMATION
  Report Type: Spontaneous
  Country: US (occurrence: None)
  Receive Date: 20141222
  Receipt Date: 20141222
  Transmission Date: 20150529
  Serious: Yes (Other)
  Sender: FDA-Public Use
  Company Number: ADR-2014-02378

PATIENT
  Age: 19 Year
  Sex: Male

DRUGS (1)
  1. BACLOFEN INTRATHECAL [Suspect]
     Active Substance: BACLOFEN
     Indication: MUSCLE SPASTICITY

REACTIONS (5)
  - Hypertonia [None]
  - Insomnia [None]
  - Drug withdrawal syndrome [None]
  - Priapism [None]
  - Device kink [None]

NARRATIVE: CASE EVENT DATE: 20140101
